FAERS Safety Report 10074194 (Version 1)
Quarter: 2014Q2

REPORT INFORMATION
  Report Type: Report from Study
  Country: TW (occurrence: TW)
  Receive Date: 20140412
  Receipt Date: 20140412
  Transmission Date: 20141212
  Serious: No
  Sender: FDA-Public Use
  Company Number: PHHY2014TW044085

PATIENT
  Age: 84 Year
  Sex: Female

DRUGS (52)
  1. AMN107 [Suspect]
     Dosage: UNK
     Dates: start: 20111123
  2. CHLORPHENIRAMIN [Concomitant]
     Dates: start: 20120411, end: 20120411
  3. CHLORPHENIRAMIN [Concomitant]
     Dates: start: 20120215, end: 20120215
  4. CHLORPHENIRAMIN [Concomitant]
     Dates: start: 20111212, end: 20111212
  5. CHLORPHENIRAMIN [Concomitant]
     Dates: start: 20120118, end: 20120118
  6. CHLORPHENIRAMIN [Concomitant]
     Dates: start: 20121009, end: 20121009
  7. CHLORPHENIRAMIN [Concomitant]
     Dates: start: 20120718, end: 20120718
  8. CHLORPHENIRAMIN [Concomitant]
     Dates: start: 20120530, end: 20120530
  9. DIPHENHYDRAMINE [Concomitant]
     Indication: URTICARIA
     Dates: start: 20120118, end: 20120620
  10. DIPHENHYDRAMINE [Concomitant]
     Dates: start: 20120118, end: 20120118
  11. ORPHENADRINE [Concomitant]
     Indication: ADJUSTMENT DISORDER
     Dates: start: 20111221
  12. ORPHENADRINE [Concomitant]
     Dates: start: 20111221, end: 20120104
  13. FLUMETHOLON [Concomitant]
     Indication: CATARACT
     Dates: start: 20120514, end: 20120611
  14. FUROSEMIDE [Concomitant]
     Dates: start: 20120118, end: 20120118
  15. FUROSEMIDE [Concomitant]
     Dates: start: 20120411, end: 20120411
  16. FUROSEMIDE [Concomitant]
     Dates: start: 20120215, end: 20120215
  17. FUROSEMIDE [Concomitant]
     Dates: start: 20121009, end: 20121009
  18. FUROSEMIDE [Concomitant]
     Dates: start: 20120618, end: 20120618
  19. FUROSEMIDE [Concomitant]
     Dates: start: 20120530, end: 20120530
  20. HYDROCORTISONE [Concomitant]
     Dates: start: 20120215, end: 20120215
  21. HYDROCORTISONE [Concomitant]
     Dates: start: 20120118, end: 20120118
  22. HYDROCORTISONE [Concomitant]
     Dates: start: 20120411, end: 20120411
  23. HYDROCORTISONE [Concomitant]
     Dates: start: 20121009, end: 20121009
  24. POLYTAR LIQUID [Concomitant]
     Indication: ECZEMA
     Dosage: UNK
     Dates: start: 20120118
  25. ALPRAZOLAM [Concomitant]
     Indication: ADJUSTMENT DISORDER
     Dates: start: 20111221
  26. ISOSORBIDE DINITRATE [Concomitant]
     Dates: start: 20111212, end: 20111212
  27. ROSUVASTATIN [Concomitant]
     Indication: HYPERCHOLESTEROLAEMIA
     Dates: start: 20111221
  28. BETAMETHASONE [Concomitant]
     Indication: SEBORRHOEIC DERMATITIS
     Dates: start: 20120118
  29. VALSARTAN [Concomitant]
     Indication: HYPERTENSION
     Dates: start: 20111221
  30. KINGMIN [Concomitant]
     Indication: DRY EYE
     Dates: start: 20120514, end: 20120611
  31. CLOPIDOGREL [Concomitant]
     Indication: CORONARY ARTERY DISEASE
     Dates: start: 20111207, end: 20111212
  32. NITROGLYCERIN [Concomitant]
     Dates: start: 20111107
  33. LANSOPRAZOLE [Concomitant]
     Indication: GASTROOESOPHAGEAL REFLUX DISEASE
     Dates: start: 20121106, end: 20121112
  34. LANSOPRAZOLE [Concomitant]
     Dates: start: 20121112, end: 20121119
  35. CELECOXIB [Concomitant]
     Indication: ABDOMINAL PAIN
     Dates: start: 20121104, end: 20121104
  36. ACTRAPID HUMAN [Concomitant]
     Indication: DIABETES MELLITUS
     Dates: start: 20121110, end: 20121111
  37. ACTRAPID HUMAN [Concomitant]
     Dates: start: 20121103, end: 20121104
  38. CEFAZOLIN [Concomitant]
     Dates: start: 20121109, end: 20121111
  39. CEFLEXIN [Concomitant]
     Indication: GASTROOESOPHAGEAL REFLUX DISEASE
     Dates: start: 20120620, end: 20120623
  40. CEFLEXIN [Concomitant]
     Dates: start: 20121112, end: 20121119
  41. GASCON [Concomitant]
     Indication: ABDOMINAL PAIN
     Dates: start: 20121103, end: 20121103
  42. GASCON [Concomitant]
     Dates: start: 20121119, end: 20121203
  43. RANITIDINE [Concomitant]
     Indication: ABDOMINAL PAIN
     Dates: start: 20121104, end: 20121104
  44. ACETAMINOPHEN [Concomitant]
     Dates: start: 20120620, end: 20120623
  45. TRAMADOL [Concomitant]
     Dates: start: 20121104, end: 20121109
  46. SUCRALFATE [Concomitant]
     Indication: GASTROOESOPHAGEAL REFLUX DISEASE
     Dates: start: 20121110, end: 20121110
  47. ULTRACET [Concomitant]
     Indication: ABDOMINAL PAIN
     Dates: start: 20121107, end: 20121108
  48. MIDAZOLAM [Concomitant]
     Indication: ABDOMINAL PAIN UPPER
     Dates: start: 20121109, end: 20121109
  49. AMINOL-RF [Concomitant]
     Indication: RENAL FAILURE CHRONIC
     Dates: start: 20121110, end: 20121111
  50. PRIMPERAN [Concomitant]
     Indication: ABDOMINAL PAIN
     Dates: start: 20121103, end: 20121104
  51. PRIMPERAN [Concomitant]
     Dates: start: 20121222, end: 20121223
  52. KAOPECTIN [Concomitant]
     Indication: GASTROENTERITIS
     Dates: start: 20121222, end: 20121222

REACTIONS (1)
  - Cough [Unknown]
